FAERS Safety Report 11224084 (Version 1)
Quarter: 2015Q2

REPORT INFORMATION
  Report Type: Spontaneous
  Country: JP (occurrence: JP)
  Receive Date: 20150629
  Receipt Date: 20150629
  Transmission Date: 20150821
  Serious: Yes (Hospitalization)
  Sender: FDA-Public Use
  Company Number: JP-ROCHE-1597899

PATIENT
  Age: 71 Year
  Sex: Male
  Weight: 40.2 kg

DRUGS (1)
  1. ROCEPHIN [Suspect]
     Active Substance: CEFTRIAXONE SODIUM
     Indication: PYELONEPHRITIS ACUTE
     Route: 041

REACTIONS (3)
  - Ileus paralytic [Recovered/Resolved]
  - Megacolon [Recovered/Resolved]
  - Pseudomembranous colitis [Recovered/Resolved]
